FAERS Safety Report 6874827-0 (Version None)
Quarter: 2010Q2

REPORT INFORMATION
  Report Type: 
  Country: None (occurrence: None)
  Receive Date: 20100610
  Receipt Date: 20100507
  Transmission Date: 20101027
  Serious: No
  Sender: FDA-Public Use
  Company Number: 2010SP026322

PATIENT

DRUGS (2)
  1. SAPHRIS [Suspect]
     Indication: BIPOLAR DISORDER
     Dosage: PO
     Route: 048
  2. SAPHRIS [Suspect]
     Indication: SCHIZOPHRENIA
     Dosage: PO
     Route: 048

REACTIONS (2)
  - DYSGEUSIA [None]
  - INCORRECT ROUTE OF DRUG ADMINISTRATION [None]
